FAERS Safety Report 10272327 (Version 1)
Quarter: 2014Q2

REPORT INFORMATION
  Report Type: Report from Study
  Country: US (occurrence: None)
  Receive Date: 20140627
  Receipt Date: 20140627
  Transmission Date: 20141212
  Serious: Yes (Hospitalization)
  Sender: FDA-Public Use
  Company Number: SYM-2014-22203

PATIENT
  Age: 45 Year
  Sex: Male
  Weight: 84.1 kg

DRUGS (12)
  1. FLUOROURACIL (FLUOROURACIL) [Suspect]
     Indication: PANCREATIC CARCINOMA
     Route: 042
     Dates: start: 20140501
  2. IRINOTECAN HYDROCHLORIDE [Suspect]
     Indication: PANCREATIC CARCINOMA
     Route: 042
     Dates: start: 20140501
  3. LEUCOVORIN (FOLINIC ACID) (FOLINIC ACID) [Suspect]
     Indication: PANCREATIC CARCINOMA
     Route: 042
     Dates: start: 20140501
  4. OXALIPLATIN (OXALIPLATIN) [Suspect]
     Indication: PANCREATIC CARCINOMA
     Dosage: 1 IN 2 WK
     Route: 042
     Dates: start: 20140501
  5. DEXAMETHASONE (DEXAMETHASONE) [Concomitant]
  6. EMLA (LIDOCAINE, PRILOCAINE) [Concomitant]
  7. MILK THISTLE (SILYBUM MARIANUM) (SILYBUM MARIANUM) [Concomitant]
  8. ONDANSETRON HYDROCHLORIDE (ONDANSETRON HYDROCHLORIDE) [Concomitant]
  9. PROCHLORPERAZINE MALEATE (PROCHLOPERAZINE MALEATE) [Concomitant]
  10. CURCUMA LONGA RHIZOME (CURCUMA LONGA RHIZOME) [Concomitant]
  11. VITAMIN D (ERGOCALCIFEROL) (ERGOCALCIFEROL) [Concomitant]
  12. ZOFRAN (ONDANSETRON HYDROCHLORIDE) (ONDANSETRON HYDROCHLORIDE) [Concomitant]

REACTIONS (3)
  - Liver function test abnormal [None]
  - Pyrexia [None]
  - Muscular weakness [None]
